FAERS Safety Report 5810885-X (Version None)
Quarter: 2008Q3

REPORT INFORMATION
  Report Type: 
  Country: None (occurrence: None)
  Receive Date: 20080716
  Receipt Date: 20080702
  Transmission Date: 20090109
  Serious: Yes (Hospitalization, Disabling, Other)
  Sender: FDA-Public Use
  Company Number: PHHO2008AR07714

PATIENT
  Sex: Male
  Weight: 79 kg

DRUGS (12)
  1. TASIGNA [Suspect]
     Indication: CHRONIC MYELOID LEUKAEMIA
     Dosage: 400 MG, QD
     Route: 048
     Dates: start: 20070518
  2. TASIGNA [Suspect]
     Dosage: UNSPECIFIED HIGHER DOSE
     Route: 048
     Dates: start: 20070707
  3. TASIGNA [Suspect]
     Dosage: UNK
     Dates: end: 20070725
  4. TASIGNA [Suspect]
     Dosage: 400 MG, QD
     Route: 048
     Dates: start: 20070726
  5. TASIGNA [Suspect]
     Dosage: UNK
     Dates: start: 20070901, end: 20070907
  6. TASIGNA [Suspect]
     Dosage: 400 MG, QD
     Route: 048
     Dates: start: 20070908
  7. IMATINIB MESYLATE [Suspect]
     Indication: CHRONIC MYELOID LEUKAEMIA
     Dosage: 400MG DAILY
     Dates: start: 20030101
  8. FLUDARABINE PHOSPHATE [Suspect]
  9. CYTARABINE [Suspect]
  10. NEUPOGEN [Suspect]
  11. IDARUBICIN HCL [Suspect]
  12. METHYLPREDNISOLONE [Suspect]

REACTIONS (27)
  - ANOSMIA [None]
  - ARTHRALGIA [None]
  - BENIGN INTRACRANIAL HYPERTENSION [None]
  - BLINDNESS [None]
  - BONE MARROW TOXICITY [None]
  - COMA [None]
  - CUSHING'S SYNDROME [None]
  - DEMYELINATION [None]
  - DRUG INEFFECTIVE [None]
  - ENCEPHALOPATHY [None]
  - GAIT DISTURBANCE [None]
  - GASTROINTESTINAL DISORDER [None]
  - HEADACHE [None]
  - HEPATITIS TOXIC [None]
  - HYPOACUSIS [None]
  - NAUSEA [None]
  - NEUROLOGICAL SYMPTOM [None]
  - NEUTROPENIA [None]
  - PLATELET COUNT DECREASED [None]
  - PYREXIA [None]
  - TRANSAMINASES INCREASED [None]
  - UPPER RESPIRATORY TRACT INFECTION [None]
  - VERTIGO [None]
  - VISION BLURRED [None]
  - VISUAL IMPAIRMENT [None]
  - VOMITING [None]
  - WHITE BLOOD CELL COUNT DECREASED [None]
